FAERS Safety Report 6250828-0 (Version None)
Quarter: 2009Q2

REPORT INFORMATION
  Report Type: 
  Country: None (occurrence: None)
  Receive Date: 20090630
  Receipt Date: 20090330
  Transmission Date: 20091009
  Serious: No
  Sender: FDA-Public Use
  Company Number: US-ABBOTT-09P-163-0565624-00

PATIENT
  Sex: Female

DRUGS (2)
  1. ZEMPLAR [Suspect]
     Indication: HYPERPARATHYROIDISM
     Dates: start: 20060301
  2. ZEMPLAR [Suspect]
     Dosage: 2 MCG TIW  M-W-F
     Dates: start: 20090301

REACTIONS (1)
  - ARTHRALGIA [None]
